FAERS Safety Report 19495933 (Version 1)
Quarter: 2021Q3

REPORT INFORMATION
  Report Type: Spontaneous
  Country: PL (occurrence: PL)
  Receive Date: 20210706
  Receipt Date: 20210706
  Transmission Date: 20211014
  Serious: Yes (Life-Threatening, Hospitalization)
  Sender: FDA-Public Use
  Company Number: PL-SA-2021SA218326

PATIENT
  Age: 63 Year
  Sex: Female
  Weight: 80 kg

DRUGS (1)
  1. OXALIPLATIN. [Suspect]
     Active Substance: OXALIPLATIN
     Indication: PANCREATIC CARCINOMA
     Dosage: 85 MG/M2
     Route: 042
     Dates: start: 20180819, end: 20180819

REACTIONS (3)
  - Dyspnoea [Recovered/Resolved]
  - Speech disorder [Recovered/Resolved]
  - Paraesthesia [Recovered/Resolved]

NARRATIVE: CASE EVENT DATE: 20180819
